FAERS Safety Report 8032802-7 (Version None)
Quarter: 2011Q4

REPORT INFORMATION
  Report Type: 
  Country: None (occurrence: None)
  Receive Date: 20111223
  Receipt Date: 20111216
  Transmission Date: 20120403
  Serious: Yes (Hospitalization, Other)
  Sender: FDA-Public Use
  Company Number: 2011SP058767

PATIENT
  Sex: Female

DRUGS (1)
  1. SYCREST (ASENAPINE  /05706901/) [Suspect]
     Indication: PRODUCT USED FOR UNKNOWN INDICATION
     Dosage: 10 MG, QD, PO
     Route: 048

REACTIONS (1)
  - LARYNGOSPASM [None]
